FAERS Safety Report 5501365-X (Version None)
Quarter: 2007Q4

REPORT INFORMATION
  Report Type: 
  Country: None (occurrence: None)
  Receive Date: 20071026
  Receipt Date: 20071011
  Transmission Date: 20080405
  Serious: Yes (Other)
  Sender: FDA-Public Use
  Company Number: 162724ISR

PATIENT
  Sex: Male

DRUGS (4)
  1. MELOXICAM [Suspect]
     Dosage: (1) ORAL
     Route: 048
     Dates: start: 20070913, end: 20070916
  2. TRAMADOL HCL [Suspect]
     Dosage: 200MG  ORAL
     Route: 048
     Dates: start: 20070913, end: 20070916
  3. TIOTROPIUM BROMIDE [Concomitant]
  4. ACETYLSALICYLIC ACID SRT [Concomitant]

REACTIONS (2)
  - MUSCULAR WEAKNESS [None]
  - NEURALGIA [None]
